FAERS Safety Report 16912923 (Version 1)
Quarter: 2019Q4

REPORT INFORMATION
  Report Type: Spontaneous
  Country: US (occurrence: US)
  Receive Date: 20190821
  Receipt Date: 20190821
  Transmission Date: 20200122
  Serious: No
  Sender: FDA-Public Use
  Company Number: None

PATIENT
  Age: 42 Year
  Sex: Female

DRUGS (1)
  1. REMICADE [Suspect]
     Active Substance: INFLIXIMAB
     Route: 042
     Dates: start: 2018, end: 201807

REACTIONS (4)
  - Pharyngeal swelling [None]
  - Swelling [None]
  - Erythema [None]
  - Pruritus [None]

NARRATIVE: CASE EVENT DATE: 20190701
